FAERS Safety Report 9727995 (Version 1)
Quarter: 2013Q4

REPORT INFORMATION
  Report Type: Spontaneous
  Country: US (occurrence: None)
  Receive Date: 20131203
  Receipt Date: 20131203
  Transmission Date: 20140711
  Serious: Yes (Disabling)
  Sender: FDA-Public Use
  Company Number: None

PATIENT
  Age: 46 Year
  Sex: Female
  Weight: 111.13 kg

DRUGS (3)
  1. VENLAFAXINE HCL [Suspect]
     Indication: DEPRESSION
     Dosage: 2 PILLS
     Route: 048
  2. VENLAFAXINE HCL [Suspect]
     Indication: ANXIETY
     Dosage: 2 PILLS
     Route: 048
  3. COENZYME Q10 [Suspect]
     Dosage: 1 PILL
     Route: 048

REACTIONS (2)
  - Confusional state [None]
  - Disturbance in attention [None]
